FAERS Safety Report 23367923 (Version 1)
Quarter: 2024Q1

REPORT INFORMATION
  Report Type: Spontaneous
  Country: CN (occurrence: CN)
  Receive Date: 20240105
  Receipt Date: 20240105
  Transmission Date: 20240409
  Serious: Yes (Other)
  Sender: FDA-Public Use
  Company Number: CN-ABBOTT-2024A-1375476

PATIENT
  Age: 51 Year
  Sex: Female
  Weight: 69 kg

DRUGS (3)
  1. FENOFIBRATE [Suspect]
     Active Substance: FENOFIBRATE
     Indication: Symptomatic treatment
     Dosage: FENOFIBRATE CAPSULES
     Route: 048
     Dates: start: 20231009, end: 20231013
  2. MEROPENEM [Concomitant]
     Active Substance: MEROPENEM
     Indication: Symptomatic treatment
     Route: 041
     Dates: start: 20231013, end: 20231023
  3. LIPITOR [Suspect]
     Active Substance: ATORVASTATIN CALCIUM
     Indication: Symptomatic treatment
     Route: 048
     Dates: start: 20231009, end: 20231024

REACTIONS (2)
  - Aspartate aminotransferase increased [Recovering/Resolving]
  - Alanine aminotransferase increased [Recovering/Resolving]

NARRATIVE: CASE EVENT DATE: 20231016
